FAERS Safety Report 4738511-1 (Version None)
Quarter: 2005Q3

REPORT INFORMATION
  Report Type: 
  Country: None (occurrence: None)
  Receive Date: 20050809
  Receipt Date: 20050728
  Transmission Date: 20060218
  Serious: Yes (Hospitalization)
  Sender: FDA-Public Use
  Company Number: FR-JNJFOC-20050705931

PATIENT
  Age: 12 Year
  Sex: Female

DRUGS (3)
  1. IMODIUM [Suspect]
     Indication: DIARRHOEA
     Route: 065
  2. ERCEFURYL [Concomitant]
     Route: 065
  3. DOLIPRANE [Concomitant]
     Route: 065

REACTIONS (5)
  - BUNDLE BRANCH BLOCK RIGHT [None]
  - CROHN'S DISEASE [None]
  - HALLUCINATION, VISUAL [None]
  - LYMPHOPENIA [None]
  - ORTHOSTATIC HYPOTENSION [None]
